FAERS Safety Report 8321764-0 (Version None)
Quarter: 2012Q2

REPORT INFORMATION
  Report Type: 
  Country: None (occurrence: None)
  Receive Date: 20120430
  Receipt Date: 20091123
  Transmission Date: 20120825
  Serious: No
  Sender: FDA-Public Use
  Company Number: US-TEVA-2009029237

PATIENT
  Sex: Male

DRUGS (2)
  1. NUVIGIL [Suspect]
     Dosage: 150 MILLIGRAM;
     Route: 048
     Dates: start: 20090101, end: 20090101
  2. PROZAC [Concomitant]

REACTIONS (2)
  - TREMOR [None]
  - BLOOD POTASSIUM DECREASED [None]
